FAERS Safety Report 21974450 (Version 1)
Quarter: 2023Q1

REPORT INFORMATION
  Report Type: Spontaneous
  Country: US (occurrence: US)
  Receive Date: 20230209
  Receipt Date: 20230209
  Transmission Date: 20230417
  Serious: Yes (Death, Hospitalization, Other)
  Sender: FDA-Public Use
  Company Number: US-AMGEN-USASP2023019234

PATIENT
  Age: 82 Year
  Sex: Female

DRUGS (11)
  1. REPATHA [Suspect]
     Active Substance: EVOLOCUMAB
     Indication: Product used for unknown indication
     Dosage: 140 MILLIGRAM
     Route: 065
  2. TYLENOL [Concomitant]
     Active Substance: ACETAMINOPHEN
  3. CYMBALTA [Concomitant]
     Active Substance: DULOXETINE HYDROCHLORIDE
  4. ASPIRIN [Concomitant]
     Active Substance: ASPIRIN
  5. BISOPROLOL [Concomitant]
     Active Substance: BISOPROLOL
  6. AMLODIPINE [Concomitant]
     Active Substance: AMLODIPINE BESYLATE
  7. MYRBETRIQ [Concomitant]
     Active Substance: MIRABEGRON
  8. IRON [Concomitant]
     Active Substance: IRON
  9. PROTONIX [Concomitant]
     Active Substance: PANTOPRAZOLE SODIUM
  10. VITAMIN B12 [Concomitant]
     Active Substance: CYANOCOBALAMIN
  11. PROBIOTICS NOS [Concomitant]
     Active Substance: PROBIOTICS NOS

REACTIONS (3)
  - Pneumonia [Fatal]
  - Nephrolithiasis [Unknown]
  - Urinary tract infection [Unknown]

NARRATIVE: CASE EVENT DATE: 20220901
